FAERS Safety Report 5231681-0 (Version None)
Quarter: 2007Q1

REPORT INFORMATION
  Report Type: 
  Country: None (occurrence: None)
  Receive Date: 20070202
  Receipt Date: 20061220
  Transmission Date: 20070707
  Serious: Yes (Hospitalization, Other)
  Sender: FDA-Public Use
  Company Number: 234289

PATIENT
  Age: 17 Year
  Sex: Male

DRUGS (7)
  1. XOLAIR [Suspect]
     Indication: ASTHMA
     Dosage: 350 UNK, Q2W, UNK
  2. THEOPHYLLINE [Concomitant]
  3. ADVAIR DISKUS 100/50 [Concomitant]
  4. INTAL MDI (CROMOLYN SODIUM) [Concomitant]
  5. SINGULAIR [Concomitant]
  6. XOPENEX [Concomitant]
  7. LEVAQUIN [Concomitant]

REACTIONS (3)
  - HERPES ZOSTER [None]
  - MENINGITIS ASEPTIC [None]
  - SINUSITIS [None]
